FAERS Safety Report 9782568 (Version 1)
Quarter: 2013Q4

REPORT INFORMATION
  Report Type: Spontaneous
  Country: US (occurrence: None)
  Receive Date: 20131224
  Receipt Date: 20131224
  Transmission Date: 20140711
  Serious: No
  Sender: FDA-Public Use
  Company Number: None

PATIENT
  Age: 65 Year
  Sex: Female
  Weight: 77.11 kg

DRUGS (14)
  1. NARDIL [Suspect]
     Indication: DEPRESSION
     Dosage: 10 A DAY
     Route: 048
     Dates: start: 1980, end: 2012
  2. SYNTHROID .088 (LEVOTHYROXINE) [Concomitant]
  3. VITAMIN 1000 [Concomitant]
  4. BABY ASA 81 MG [Concomitant]
  5. LAMOTRIGINE 100 MG [Concomitant]
  6. RITALIN 20 MG [Concomitant]
  7. SIMVASTATIN 40 MG [Concomitant]
  8. MONTELUKAST 10 MG (SINGULAIR) [Concomitant]
  9. CYMBALTA 90 MG -60 MG AND 30MG LILLY [Concomitant]
  10. KLONOPIN -CLONAZEPAM 1 MG [Concomitant]
  11. ZYPREXA 20 MG [Concomitant]
  12. LANTUS [Concomitant]
  13. HUMALOG INSULIN [Concomitant]
  14. AMBIEN 10 MG [Concomitant]

REACTIONS (4)
  - Sleep apnoea syndrome [None]
  - Fall [None]
  - Balance disorder [None]
  - Thyroid disorder [None]
